FAERS Safety Report 9005529 (Version 1)
Quarter: 2013Q1

REPORT INFORMATION
  Report Type: Spontaneous
  Country: US (occurrence: US)
  Receive Date: 20130109
  Receipt Date: 20130109
  Transmission Date: 20140127
  Serious: Yes (Hospitalization, Other)
  Sender: FDA-Public Use
  Company Number: US-JNJFOC-20130101077

PATIENT
  Sex: Female
  Weight: 94.35 kg

DRUGS (5)
  1. TOPAMAX [Suspect]
     Indication: MIGRAINE PROPHYLAXIS
     Dosage: 1 IN AM AND 1 IN BEDTIME
     Route: 048
  2. TOPIRAMATE [Suspect]
     Indication: MIGRAINE PROPHYLAXIS
     Dosage: 1 IN AM AND 1 IN BEDTIME
     Route: 048
  3. HYDROCODONE [Concomitant]
     Indication: INFLAMMATION
     Route: 048
  4. ADVAIR DISKUS [Concomitant]
     Indication: ASTHMA
     Dosage: 250-50/TABLET /250-50 ORAL INHALATION
     Route: 048
  5. UNKNOWN MEDICATION [Concomitant]
     Indication: MUSCLE RELAXANT THERAPY
     Route: 048

REACTIONS (3)
  - Chronic inflammatory demyelinating polyradiculoneuropathy [Not Recovered/Not Resolved]
  - Trigeminal neuralgia [Unknown]
  - Treatment noncompliance [Unknown]
